FAERS Safety Report 17621147 (Version 1)
Quarter: 2020Q2

REPORT INFORMATION
  Report Type: Spontaneous
  Country: FR (occurrence: FR)
  Receive Date: 20200403
  Receipt Date: 20200403
  Transmission Date: 20200713
  Serious: Yes (Hospitalization)
  Sender: FDA-Public Use
  Company Number: FR-TEVA-2020-FR-1217191

PATIENT
  Age: 73 Year
  Sex: Male
  Weight: 80 kg

DRUGS (7)
  1. DAONIL [Concomitant]
     Active Substance: GLYBURIDE
  2. LAMALINE [Concomitant]
  3. METFORMINE [Concomitant]
     Active Substance: METFORMIN HYDROCHLORIDE
  4. OFLOXACINE [Suspect]
     Active Substance: OFLOXACIN
     Indication: URINARY TRACT INFECTION
     Dosage: 1 DOSAGE FORMS
     Route: 048
     Dates: start: 20200102, end: 20200110
  5. PRADAXA [Concomitant]
     Active Substance: DABIGATRAN ETEXILATE MESYLATE
  6. FLECAINE [Suspect]
     Active Substance: FLECAINIDE
     Indication: ATRIAL FIBRILLATION
     Route: 048
     Dates: start: 2016
  7. CANDESARTAN CILEXETIL. [Concomitant]
     Active Substance: CANDESARTAN CILEXETIL

REACTIONS (1)
  - Ventricular tachycardia [Recovering/Resolving]

NARRATIVE: CASE EVENT DATE: 202001
